FAERS Safety Report 4715599-5 (Version None)
Quarter: 2005Q3

REPORT INFORMATION
  Report Type: 
  Country: None (occurrence: None)
  Receive Date: 20050713
  Receipt Date: 20050324
  Transmission Date: 20060218
  Serious: Yes (Hospitalization)
  Sender: FDA-Public Use
  Company Number: 2005FR-00075

PATIENT
  Age: 66 Year
  Sex: Female

DRUGS (8)
  1. ASPIRIN [Suspect]
     Indication: ATRIAL SEPTAL DEFECT REPAIR
     Dosage: 75 MG, BD, ORAL
     Route: 048
     Dates: start: 20040501, end: 20050307
  2. CLOPIDOGREL BISULFATE [Concomitant]
  3. LORATADINE [Concomitant]
  4. ATORVASTATIN CALCIUM [Concomitant]
  5. CAFERGOT [Concomitant]
  6. ACETAMINOPHEN [Concomitant]
  7. COD LIVER OIL [Concomitant]
  8. AMILORIDE HCL AND HYDROCHLOROTHIAZIDE [Concomitant]

REACTIONS (1)
  - GASTROINTESTINAL HAEMORRHAGE [None]
